FAERS Safety Report 10343736 (Version 4)
Quarter: 2015Q3

REPORT INFORMATION
  Report Type: Report from Study
  Country: CA (occurrence: CA)
  Receive Date: 20140725
  Receipt Date: 20150701
  Transmission Date: 20151125
  Serious: Yes (Other)
  Sender: FDA-Public Use
  Company Number: CA-GILEAD-2014-0109645

PATIENT
  Age: 31 Year
  Sex: Male
  Weight: 130 kg

DRUGS (2)
  1. SIMEPREVIR [Suspect]
     Active Substance: SIMEPREVIR
     Indication: HEPATITIS C
     Dosage: 150 MG, QD
     Route: 048
     Dates: start: 20140513, end: 20140715
  2. SOFOSBUVIR [Suspect]
     Active Substance: SOFOSBUVIR
     Indication: HEPATITIS C
     Dosage: 400 MG, QD
     Route: 048
     Dates: start: 20140513, end: 20140715

REACTIONS (5)
  - Ventricular extrasystoles [Recovered/Resolved]
  - Heart rate irregular [Recovered/Resolved]
  - Chest discomfort [Recovered/Resolved]
  - Bradycardia [Unknown]
  - Extrasystoles [Not Recovered/Not Resolved]

NARRATIVE: CASE EVENT DATE: 20140622
